FAERS Safety Report 6474631-1 (Version None)
Quarter: 2009Q4

REPORT INFORMATION
  Report Type: 
  Country: None (occurrence: None)
  Receive Date: 20091204
  Receipt Date: 20090701
  Transmission Date: 20100525
  Serious: Yes (Hospitalization)
  Sender: FDA-Public Use
  Company Number: GB-ELI_LILLY_AND_COMPANY-GB200901004939

PATIENT
  Sex: Male

DRUGS (4)
  1. SOMATROPIN [Suspect]
     Indication: GROWTH HORMONE DEFICIENCY
     Dosage: 0.2 MG, DAILY (1/D)
     Route: 065
     Dates: start: 20011001, end: 20090105
  2. HYDROCORTISONE [Concomitant]
     Dosage: UNK, UNKNOWN
     Route: 065
     Dates: start: 20011001
  3. LEVOTHYROXINE SODIUM [Concomitant]
     Dosage: UNK, UNKNOWN
     Route: 065
     Dates: start: 20011001
  4. NEBIDO                             /00103107/ [Concomitant]
     Dosage: UNK, UNKNOWN
     Route: 065
     Dates: start: 20080121

REACTIONS (2)
  - DIARRHOEA [None]
  - VOMITING [None]
